FAERS Safety Report 13271745 (Version 1)
Quarter: 2017Q1

REPORT INFORMATION
  Report Type: Not Available
  Country: NL (occurrence: NL)
  Receive Date: 20170227
  Receipt Date: 20170227
  Transmission Date: 20170428
  Serious: Yes (Other)
  Sender: FDA-Public Use
  Company Number: NL--2017-NL-000001

PATIENT
  Age: 29 Year
  Sex: Male

DRUGS (2)
  1. METRONIDAZOLE BRAND UNSPECIFIED (VIVIMED) [Suspect]
     Active Substance: METRONIDAZOLE
     Indication: ABSCESS DRAINAGE
     Dosage: UNKNOWN
     Route: 042
  2. CEFUROXIME. [Suspect]
     Active Substance: CEFUROXIME
     Dosage: UNKNOWN
     Route: 042

REACTIONS (1)
  - Factor V inhibition [Recovered/Resolved]
